FAERS Safety Report 4455661-8 (Version None)
Quarter: 2004Q3

REPORT INFORMATION
  Report Type: 
  Country: None (occurrence: None)
  Receive Date: 20040922
  Receipt Date: 20040914
  Transmission Date: 20050211
  Serious: Yes (Hospitalization)
  Sender: FDA-Public Use
  Company Number: PHRM2004FR02776

PATIENT
  Age: 40 Year
  Sex: Male

DRUGS (6)
  1. LEPONEX [Suspect]
     Indication: SCHIZOPHRENIA
     Dosage: 350 MG/DAY
     Route: 048
     Dates: start: 20020101
  2. LEPONEX [Suspect]
     Dosage: 400 MG/DAY
     Route: 048
  3. VALPROIC ACID [Concomitant]
     Indication: SCHIZOPHRENIA
     Route: 048
  4. SOLIAN [Concomitant]
     Indication: SCHIZOPHRENIA
     Dosage: 400 DROPS/TID
     Route: 048
  5. KAYEXALATE [Concomitant]
  6. THERALENE [Concomitant]

REACTIONS (4)
  - BLOOD PRESSURE INCREASED [None]
  - DELIRIUM [None]
  - OEDEMA PERIPHERAL [None]
  - TACHYCARDIA [None]
